FAERS Safety Report 17022809 (Version 1)
Quarter: 2019Q4

REPORT INFORMATION
  Report Type: Spontaneous
  Country: IL (occurrence: IL)
  Receive Date: 20191112
  Receipt Date: 20191112
  Transmission Date: 20200122
  Serious: Yes (Other)
  Sender: FDA-Public Use
  Company Number: NVSC2019IL029260

PATIENT
  Age: 48 Year
  Sex: Male

DRUGS (1)
  1. RYDAPT [Suspect]
     Active Substance: MIDOSTAURIN
     Indication: SYSTEMIC MASTOCYTOSIS
     Dosage: 100 OT, BID
     Route: 065

REACTIONS (3)
  - Oligodendroglioma [Not Recovered/Not Resolved]
  - Seizure [Unknown]
  - Second primary malignancy [Not Recovered/Not Resolved]
